FAERS Safety Report 9700849 (Version 2)
Quarter: 2014Q1

REPORT INFORMATION
  Report Type: Spontaneous
  Country: IT (occurrence: None)
  Receive Date: 20131119
  Receipt Date: 20140103
  Transmission Date: 20141002
  Serious: Yes (Hospitalization)
  Sender: FDA-Public Use
  Company Number: NL01PV13.34683

PATIENT
  Age: 67 Year
  Sex: Male

DRUGS (6)
  1. TAMSULOSIN [Suspect]
     Indication: PROSTATE CANCER
     Route: 048
     Dates: start: 20080101, end: 20131005
  2. CITALOPRAM [Suspect]
     Indication: DEPRESSION
     Route: 048
     Dates: start: 20080101, end: 20131005
  3. RIVOTRIL [Concomitant]
  4. RANIDIL [Concomitant]
  5. MULTIVITAMIN /00097801/ [Concomitant]
  6. AMIODARONE HYDROCHLORIDE [Concomitant]

REACTIONS (2)
  - Hyponatraemia [None]
  - Iatrogenic injury [None]
